FAERS Safety Report 18551254 (Version 1)
Quarter: 2020Q4

REPORT INFORMATION
  Report Type: Spontaneous
  Country: JP (occurrence: JP)
  Receive Date: 20201126
  Receipt Date: 20201126
  Transmission Date: 20210114
  Serious: Yes (Other)
  Sender: FDA-Public Use
  Company Number: JP-ASTRAZENECA-2020SE39389

PATIENT
  Age: 85 Year
  Sex: Female

DRUGS (1)
  1. IRESSA [Suspect]
     Active Substance: GEFITINIB
     Indication: NON-SMALL CELL LUNG CANCER
     Route: 048

REACTIONS (4)
  - Malignant neoplasm progression [Unknown]
  - Paronychia [Recovering/Resolving]
  - Drug resistance [Unknown]
  - Drug tolerance [Unknown]

NARRATIVE: CASE EVENT DATE: 202001
